FAERS Safety Report 10794662 (Version 2)
Quarter: 2015Q1

REPORT INFORMATION
  Report Type: Spontaneous
  Country: US (occurrence: US)
  Receive Date: 20150213
  Receipt Date: 20150303
  Transmission Date: 20150721
  Serious: Yes (Hospitalization)
  Sender: FDA-Public Use
  Company Number: US-INTERMUNE, INC.-201502IM009693

PATIENT
  Sex: Male
  Weight: 119.4 kg

DRUGS (18)
  1. CALCIUM [Concomitant]
     Active Substance: CALCIUM
  2. WARFARIN SODIUM. [Concomitant]
     Active Substance: WARFARIN SODIUM
  3. POTASSIUM CHLORIDE. [Concomitant]
     Active Substance: POTASSIUM CHLORIDE
  4. AMMONIUM LACTATE. [Concomitant]
     Active Substance: AMMONIUM LACTATE
     Dosage: 1 APPLICATION
  5. DIOVAN [Concomitant]
     Active Substance: VALSARTAN
  6. LORATADINE. [Concomitant]
     Active Substance: LORATADINE
  7. ESBRIET [Suspect]
     Active Substance: PIRFENIDONE
     Dosage: 2403 MG
     Route: 048
  8. SIMVASTATIN. [Concomitant]
     Active Substance: SIMVASTATIN
  9. COUMADIN [Concomitant]
     Active Substance: WARFARIN SODIUM
  10. VITAMIN B12 [Concomitant]
     Active Substance: CYANOCOBALAMIN
     Route: 060
  11. OMEPRAZOLE. [Concomitant]
     Active Substance: OMEPRAZOLE
  12. OXYGEN. [Concomitant]
     Active Substance: OXYGEN
  13. TORSEMIDE. [Concomitant]
     Active Substance: TORSEMIDE
  14. ESBRIET [Suspect]
     Active Substance: PIRFENIDONE
     Indication: IDIOPATHIC PULMONARY FIBROSIS
     Route: 048
     Dates: start: 20141126
  15. TRAMADOL HCL [Concomitant]
     Active Substance: TRAMADOL HYDROCHLORIDE
  16. COREG CR [Concomitant]
     Active Substance: CARVEDILOL PHOSPHATE
  17. ESBRIET [Suspect]
     Active Substance: PIRFENIDONE
     Dosage: 1602 MG
     Route: 048
     Dates: end: 20150202
  18. PREDNISONE. [Concomitant]
     Active Substance: PREDNISONE

REACTIONS (5)
  - Decreased appetite [Recovered/Resolved]
  - Vomiting [Unknown]
  - Vision blurred [Unknown]
  - Diarrhoea [Recovering/Resolving]
  - Nausea [Unknown]
